FAERS Safety Report 6926221-1 (Version None)
Quarter: 2010Q3

REPORT INFORMATION
  Report Type: 
  Country: None (occurrence: None)
  Receive Date: 20100816
  Receipt Date: 20100802
  Transmission Date: 20110219
  Serious: Yes (Death)
  Sender: FDA-Public Use
  Company Number: US-MYLANLABS-2010S1013888

PATIENT
  Age: 49 Year
  Sex: Female

DRUGS (6)
  1. FENTANYL CITRATE [Suspect]
     Indication: OVERDOSE
     Dosage: TWO 50 MICROG/H PATCHES
     Route: 062
  2. ALPRAZOLAM [Concomitant]
     Route: 065
  3. BUPROPION HCL [Concomitant]
     Route: 065
  4. DIAZEPAM [Concomitant]
     Route: 065
  5. QUETIAPINE [Concomitant]
     Route: 065
  6. TRAZODONE HCL [Concomitant]
     Route: 065

REACTIONS (2)
  - DEATH [None]
  - OVERDOSE [None]
